FAERS Safety Report 11990964 (Version 2)
Quarter: 2016Q1

REPORT INFORMATION
  Report Type: Report from Study
  Country: CA (occurrence: CA)
  Receive Date: 20160202
  Receipt Date: 20160209
  Transmission Date: 20160526
  Serious: Yes (Other)
  Sender: FDA-Public Use
  Company Number: CA-BIOMARINAP-CA-2016-108809

PATIENT
  Age: 10 Year
  Sex: Female
  Weight: 25 kg

DRUGS (5)
  1. BENADRYL [Concomitant]
     Active Substance: DIPHENHYDRAMINE HYDROCHLORIDE
     Indication: PREMEDICATION
  2. IBUPROFEN. [Concomitant]
     Active Substance: IBUPROFEN
     Indication: PREMEDICATION
  3. ALDURAZYME [Suspect]
     Active Substance: LARONIDASE
     Indication: MUCOPOLYSACCHARIDOSIS I
     Dosage: 14.5 MG, QOW
     Route: 041
     Dates: start: 20160131
  4. ALDURAZYME [Suspect]
     Active Substance: LARONIDASE
     Dosage: 14.5 MG, QOW
     Route: 041
     Dates: start: 20130510, end: 20160117
  5. EMLA [Concomitant]
     Active Substance: LIDOCAINE\PRILOCAINE
     Indication: PREMEDICATION
     Dosage: UNK

REACTIONS (7)
  - Dysphonia [Recovered/Resolved]
  - Fatigue [Recovered/Resolved]
  - Pain [Recovered/Resolved]
  - Cough [Recovered/Resolved]
  - Pyrexia [Recovered/Resolved]
  - Carpal tunnel decompression [Recovered/Resolved]
  - Flat affect [Recovered/Resolved]

NARRATIVE: CASE EVENT DATE: 20160118
